FAERS Safety Report 4763581-4 (Version None)
Quarter: 2005Q3

REPORT INFORMATION
  Report Type: 
  Country: None (occurrence: None)
  Receive Date: 20050908
  Receipt Date: 20000420
  Transmission Date: 20060218
  Serious: Yes (Hospitalization, Disabling)
  Sender: FDA-Public Use
  Company Number: IE-MERCK-00045183

PATIENT
  Age: 70 Year
  Sex: Male

DRUGS (5)
  1. VIOXX [Suspect]
     Indication: SPINAL OSTEOARTHRITIS
     Route: 048
     Dates: start: 20000223, end: 20000301
  2. VIOXX [Suspect]
     Indication: NECK PAIN
     Route: 048
     Dates: start: 20000223, end: 20000301
  3. DICLOFENAC SODIUM AND MISOPROSTOL [Concomitant]
     Indication: SPINAL OSTEOARTHRITIS
     Route: 065
     Dates: end: 20000222
  4. WARFARIN [Suspect]
     Route: 065
  5. PROPAFENONE HYDROCHLORIDE [Concomitant]
     Indication: ARRHYTHMIA
     Route: 065

REACTIONS (13)
  - ARTHRALGIA [None]
  - BACK PAIN [None]
  - CONTUSION [None]
  - DEPRESSION [None]
  - INFLUENZA LIKE ILLNESS [None]
  - INSOMNIA [None]
  - LISTLESS [None]
  - MOUTH ULCERATION [None]
  - MUSCLE HAEMORRHAGE [None]
  - PAIN IN EXTREMITY [None]
  - SKIN EXFOLIATION [None]
  - STRESS [None]
  - VASCULAR RUPTURE [None]
